FAERS Safety Report 8792866 (Version 3)
Quarter: 2012Q4

REPORT INFORMATION
  Report Type: Report from Study
  Country: CA (occurrence: CA)
  Receive Date: 20120918
  Receipt Date: 20120927
  Transmission Date: 20130627
  Serious: Yes (Hospitalization)
  Sender: FDA-Public Use
  Company Number: CA-JNJFOC-20120903911

PATIENT
  Age: 47 Year
  Sex: Female

DRUGS (2)
  1. STELARA [Suspect]
     Indication: PSORIASIS
     Route: 058
     Dates: start: 20110707
  2. COUMADIN [Concomitant]

REACTIONS (2)
  - Pseudomonas infection [Not Recovered/Not Resolved]
  - Psoriasis [Not Recovered/Not Resolved]
